FAERS Safety Report 14750190 (Version 1)
Quarter: 2018Q2

REPORT INFORMATION
  Report Type: Report from Study
  Country: NL (occurrence: NL)
  Receive Date: 20180412
  Receipt Date: 20180412
  Transmission Date: 20180711
  Serious: Yes (Other)
  Sender: FDA-Public Use
  Company Number: NL-TEVA-2018-NL-881412

PATIENT
  Age: 82 Year
  Sex: Male

DRUGS (1)
  1. METHOTREXAAT TAB 2,5 MG [Suspect]
     Active Substance: METHOTREXATE SODIUM
     Indication: RHEUMATOID ARTHRITIS
     Dosage: WEDNESDAY 4 TAB EVENING
     Dates: start: 20080311, end: 20091129

REACTIONS (2)
  - Blood disorder [Unknown]
  - Leukopenia [Unknown]

NARRATIVE: CASE EVENT DATE: 20091129
